FAERS Safety Report 14939919 (Version 1)
Quarter: 2018Q2

REPORT INFORMATION
  Report Type: Spontaneous
  Country: US (occurrence: US)
  Receive Date: 20180507
  Receipt Date: 20180507
  Transmission Date: 20180711
  Serious: Yes (Hospitalization, Other)
  Sender: FDA-Public Use
  Company Number: None

PATIENT
  Age: 16 Year
  Sex: Male
  Weight: 67.5 kg

DRUGS (2)
  1. ESCITALOPRAM [Concomitant]
     Active Substance: ESCITALOPRAM OXALATE
  2. ANTIPYRINE-BENZOCAINE OTIC (PREPACK AURALGAN EAR DROPS #1) [Suspect]
     Active Substance: ANTIPYRINE\BENZOCAINE
     Indication: PRODUCT USED FOR UNKNOWN INDICATION
     Dosage: QUANTITY:5 DROP(S);OTHER FREQUENCY:EVERY HOUR;?
     Route: 001
     Dates: start: 20180418, end: 20180418

REACTIONS (8)
  - Product use issue [None]
  - Tympanic membrane perforation [None]
  - Otitis media [None]
  - Feeding disorder [None]
  - Pain [None]
  - Disorientation [None]
  - Nausea [None]
  - Facial paralysis [None]

NARRATIVE: CASE EVENT DATE: 20180418
